FAERS Safety Report 6582879-0 (Version None)
Quarter: 2010Q1

REPORT INFORMATION
  Report Type: 
  Country: None (occurrence: None)
  Receive Date: 20100216
  Receipt Date: 20100215
  Transmission Date: 20100710
  Serious: Yes (Hospitalization)
  Sender: FDA-Public Use
  Company Number: FR-SANOFI-AVENTIS-2010SA008579

PATIENT
  Age: 84 Year
  Sex: Female

DRUGS (9)
  1. STILNOX [Suspect]
     Indication: INSOMNIA
     Route: 048
     Dates: end: 20090925
  2. LEXOMIL [Suspect]
     Indication: INSOMNIA
     Route: 048
     Dates: end: 20090925
  3. CORDARONE [Concomitant]
     Route: 048
  4. AMLOR [Concomitant]
     Route: 048
  5. TRIATEC [Concomitant]
     Route: 048
  6. LASILIX [Concomitant]
     Route: 048
  7. SEROPLEX [Concomitant]
  8. GAVISCON [Concomitant]
  9. ATARAX [Concomitant]

REACTIONS (1)
  - COMA [None]
